FAERS Safety Report 15379112 (Version 1)
Quarter: 2018Q3

REPORT INFORMATION
  Report Type: Report from Study
  Country: GB (occurrence: GB)
  Receive Date: 20180913
  Receipt Date: 20180913
  Transmission Date: 20181010
  Serious: Yes (Other)
  Sender: FDA-Public Use
  Company Number: GB-SA-2017SA093515

PATIENT
  Age: 33 Year
  Sex: Female

DRUGS (2)
  1. ALEMTUZUMAB [Suspect]
     Active Substance: ALEMTUZUMAB
     Indication: MULTIPLE SCLEROSIS RELAPSE
     Dosage: 12 MG,QD
     Route: 041
     Dates: start: 20170515, end: 20170517
  2. ALEMTUZUMAB [Suspect]
     Active Substance: ALEMTUZUMAB
     Dosage: 12 MG, QD
     Route: 041
     Dates: start: 20160411, end: 20160418

REACTIONS (5)
  - Urinary tract infection [Recovered/Resolved]
  - Immune thrombocytopenic purpura [Not Recovered/Not Resolved]
  - Hyperemesis gravidarum [Not Recovered/Not Resolved]
  - Headache [Recovered/Resolved]
  - Maternal exposure before pregnancy [Not Recovered/Not Resolved]

NARRATIVE: CASE EVENT DATE: 20170515
